FAERS Safety Report 6149701-8 (Version None)
Quarter: 2009Q2

REPORT INFORMATION
  Report Type: 
  Country: None (occurrence: None)
  Receive Date: 20090409
  Receipt Date: 20090323
  Transmission Date: 20091009
  Serious: No
  Sender: FDA-Public Use
  Company Number: CA-B.I. PHARMACEUTICALS,INC./RIDGEFIELD-2009-BP-04355BP

PATIENT
  Sex: Male

DRUGS (1)
  1. MIRAPEX [Suspect]
     Indication: PARKINSON'S DISEASE
     Dates: start: 20051001, end: 20061001

REACTIONS (7)
  - ANXIETY [None]
  - COMPULSIVE SHOPPING [None]
  - HYPERSEXUALITY [None]
  - NEUROSIS [None]
  - PERSONALITY CHANGE [None]
  - POST-TRAUMATIC STRESS DISORDER [None]
  - SOMNOLENCE [None]
